FAERS Safety Report 19804783 (Version 1)
Quarter: 2021Q3

REPORT INFORMATION
  Report Type: Other
  Country: DE (occurrence: DE)
  Receive Date: 20210908
  Receipt Date: 20210908
  Transmission Date: 20211014
  Serious: Yes (Congenital Anomaly, Other)
  Sender: FDA-Public Use
  Company Number: DE-GLENMARK PHARMACEUTICALS-2021GMK067660

PATIENT

DRUGS (7)
  1. RIZATRIPTAN BENZOATE. [Suspect]
     Active Substance: RIZATRIPTAN BENZOATE
     Indication: MIGRAINE
     Dosage: 10 MILLIGRAM, QD (10 [MG/D (BEI BEDARF) ]/ OFTEN, MORE THAN ON 30 DAYS : 1ST TRIMESTER, 4.6. ? 33.6.
     Route: 064
  2. INFLUVAC TETRA [Concomitant]
     Active Substance: INFLUENZA VIRUS VACCINE QUADRIVALENT TYPE A+B
     Indication: IMMUNISATION
     Dosage: UNK (3RD TRIMESTER, 28.4. ? 28.4. GESTATIONAL WEEK )
     Route: 064
     Dates: start: 20200928, end: 20200928
  3. AZITHROMYCIN ANHYDROUS. [Concomitant]
     Active Substance: AZITHROMYCIN ANHYDROUS
     Indication: MASTITIS
     Dosage: 250 MILLIGRAM, QD (1ST TRIMESTER, 9.1. ? 9.6. GESTATIONAL WEEK)
     Route: 064
     Dates: start: 20200515, end: 20200520
  4. SUMATRIPTAN. [Concomitant]
     Active Substance: SUMATRIPTAN
     Indication: MIGRAINE
     Dosage: UNK (1ST TRIMESTER, 8.2. ? 8.2. GESTATIONAL WEEK)
     Route: 064
     Dates: start: 20200509, end: 20200509
  5. PARACETAMOL [Concomitant]
     Active Substance: ACETAMINOPHEN
     Indication: MIGRAINE
     Dosage: 500 MILLIGRAM, BID (1000 [MG/D (BIS 500, BEI BEDARF) ]/ ON ABOUT 11 DAYS)
     Route: 064
  6. IBUPROFEN. [Concomitant]
     Active Substance: IBUPROFEN
     Indication: MIGRAINE
     Dosage: 400 MILLIGRAM, BID (1ST TRIMESTER: 4.6. ? 28.6. GESTATIONAL WEEK, 800 [MG/D (BIS 400), BEI BEDARF) ]
     Route: 064
  7. BOOSTRIX [Concomitant]
     Active Substance: TETANUS TOXOID, REDUCED DIPHTHERIA TOXOID AND ACELLULAR PERTUSSIS VACCINE, ADSORBED ANTIGENS
     Indication: IMMUNISATION
     Dosage: UNK (30.4. ? 30.4. GESTATIONAL WEEK  : 3RD TRIMESTER)
     Route: 064
     Dates: start: 20201012, end: 20201012

REACTIONS (6)
  - Congenital skin dimples [Unknown]
  - Inguinal hernia [Unknown]
  - Congenital acrochordon [Unknown]
  - Foetal exposure during pregnancy [Unknown]
  - Cryptorchism [Unknown]
  - Granulosa cell tumour of the testis [Unknown]

NARRATIVE: CASE EVENT DATE: 20201204
